FAERS Safety Report 22810855 (Version 2)
Quarter: 2023Q4

REPORT INFORMATION
  Report Type: Spontaneous
  Country: JP (occurrence: JP)
  Receive Date: 20230810
  Receipt Date: 20231004
  Transmission Date: 20240110
  Serious: Yes (Congenital Anomaly)
  Sender: FDA-Public Use
  Company Number: JP-ferring-EVA202300958FERRINGPH

PATIENT

DRUGS (2)
  1. MENOTROPINS [Suspect]
     Active Substance: MENOTROPINS
     Indication: Ovulation induction
     Dosage: 150 INTERNATIONAL UNIT
     Route: 065
     Dates: start: 20220411
  2. MENOTROPINS [Suspect]
     Active Substance: MENOTROPINS
     Dosage: 150 INTERNATIONAL UNIT
     Route: 065
     Dates: start: 20220409

REACTIONS (1)
  - Trisomy 21 [Unknown]
